FAERS Safety Report 10631278 (Version 1)
Quarter: 2014Q4

REPORT INFORMATION
  Report Type: Spontaneous
  Country: US (occurrence: US)
  Receive Date: 20141205
  Receipt Date: 20141205
  Transmission Date: 20150529
  Serious: No
  Sender: FDA-Public Use
  Company Number: US-BRISTOL-MYERS SQUIBB COMPANY-21481130

PATIENT
  Age: 21 Year
  Sex: Male

DRUGS (1)
  1. ABILIFY [Suspect]
     Active Substance: ARIPIPRAZOLE
     Dosage: SPLITTING 10MG, 15MG, 20MG OR 30MG DEPENDING ON DOSE.

REACTIONS (1)
  - Wrong technique in drug usage process [Unknown]
